FAERS Safety Report 5477640-4 (Version None)
Quarter: 2007Q4

REPORT INFORMATION
  Report Type: 
  Country: None (occurrence: None)
  Receive Date: 20071002
  Receipt Date: 20070920
  Transmission Date: 20080405
  Serious: Yes (Hospitalization)
  Sender: FDA-Public Use
  Company Number: 6038246

PATIENT
  Age: 78 Year
  Sex: Female

DRUGS (8)
  1. GLUCOVANCE [Suspect]
     Indication: TYPE 2 DIABETES MELLITUS
     Dosage: 2 DOSAGE FORMS (1 DOSAGE FORMS, 2IN 1 D), ORAL
     Route: 048
     Dates: start: 20070708, end: 20070808
  2. MOLSIDOMINE [Concomitant]
  3. TRIVASTAL (PIRIBEDIL) [Concomitant]
  4. ATORVASTATIN CALCIUM [Concomitant]
  5. ASPIRIN [Concomitant]
  6. MODOPAR   (LEVODOPA, BENSERAZIDE HYDROCHLORIDE) [Concomitant]
  7. NEURONTIN [Concomitant]
  8. XANAX [Concomitant]

REACTIONS (3)
  - DEPRESSION [None]
  - HYPOGLYCAEMIC SEIZURE [None]
  - TREATMENT NONCOMPLIANCE [None]
